FAERS Safety Report 7961645-5 (Version None)
Quarter: 2011Q4

REPORT INFORMATION
  Report Type: 
  Country: None (occurrence: None)
  Receive Date: 20111207
  Receipt Date: 20111125
  Transmission Date: 20120403
  Serious: Yes (Hospitalization)
  Sender: FDA-Public Use
  Company Number: JP-SANOFI-AVENTIS-2011SA078903

PATIENT
  Age: 60 Year
  Sex: Male

DRUGS (12)
  1. MAGNESIUM OXIDE [Concomitant]
     Dosage: THERAPY START DATE: 08 OCT (YEAR NOT SPECIFIED)
  2. LASIX [Suspect]
     Dosage: THERAPY STARTED: 8 OCT (YEAR NOT SPECIFIED), THERAPY END DATE: 10 NOV (YEAR NOT SPECIFIED)
     Route: 065
  3. ENALAPRIL MALEATE [Concomitant]
     Dosage: (5); THERAPY START DATE: 11 OCT (YEAR NOT SPECIFIED)
  4. PLAVIX [Concomitant]
     Dosage: (75); THERAPY START DATE: 4 OCT (YEAR NOT SPECIFIED)
  5. ASPIRIN [Concomitant]
     Dosage: (100); THERAPY START DATE: 4 OCT (YEAR NOT SPECIFIED)
  6. WARFARIN SODIUM [Concomitant]
     Dosage: THERAPY START DATE: 14 OCT (YEAR NOT SPECIFIED)
  7. ALDACTONE [Concomitant]
     Dosage: (25); AFTER BREAKFAST AND LUNCH; THERAPY START DATE: 07 OCT (YEAR NOT SPECIFIED)
  8. CARVEDILOL [Concomitant]
     Dosage: (2.5); THERAPY START DATE: 06 OCT (YEAR NOT SPECIFIED)
  9. LANSOPRAZOLE [Concomitant]
     Dosage: (15); THERAPY START DATE: 5 OCT (YEAR NOT SPECIFIED)
  10. HMG COA REDUCTASE INHIBITORS [Concomitant]
     Dosage: PITAVASTATIN (2 MG); THERAPY START DATE: 26 OCT (YEAR NOT SPECIFIED); FREQUENCY: AFTER  BREAKFAST
  11. TEPRENONE [Concomitant]
     Dosage: (50); THERAPY START DATE: 13 OCT (YEAR NOT SPECIFIED)
  12. SENNOSIDE A+B [Concomitant]
     Dosage: (12); THERAPY START DATE: 08 OCT (YEAR NOT SPECIFIED); BEFORE BED

REACTIONS (4)
  - AGRANULOCYTOSIS [None]
  - ORAL CANDIDIASIS [None]
  - PYREXIA [None]
  - TONSILLITIS [None]
